FAERS Safety Report 21760469 (Version 2)
Quarter: 2022Q4

REPORT INFORMATION
  Report Type: Spontaneous
  Country: FR (occurrence: FR)
  Receive Date: 20221221
  Receipt Date: 20221230
  Transmission Date: 20230113
  Serious: Yes (Life-Threatening)
  Sender: FDA-Public Use
  Company Number: None

PATIENT
  Age: 64 Year
  Sex: Female
  Weight: 60 kg

DRUGS (7)
  1. DULOXETINE HYDROCHLORIDE [Suspect]
     Active Substance: DULOXETINE HYDROCHLORIDE
     Indication: Toxicity to various agents
     Dosage: 120 MG, DAILY
     Route: 048
     Dates: start: 20221201, end: 20221201
  2. ALPRAZOLAM [Suspect]
     Active Substance: ALPRAZOLAM
     Indication: Toxicity to various agents
     Dosage: 6.25 MG, DAILY
     Route: 048
     Dates: start: 20221201, end: 20221201
  3. TERALITHE [Suspect]
     Active Substance: LITHIUM CARBONATE
     Indication: Toxicity to various agents
     Dosage: 1200 MG, DAILY
     Route: 048
     Dates: start: 20221201, end: 20221201
  4. PAROXETINE HYDROCHLORIDE [Suspect]
     Active Substance: PAROXETINE HYDROCHLORIDE
     Indication: Toxicity to various agents
     Dosage: 180 MG, DAILY
     Route: 048
     Dates: start: 20221201, end: 20221201
  5. PRAZEPAM [Suspect]
     Active Substance: PRAZEPAM
     Indication: Toxicity to various agents
     Dosage: 60 MG, DAILY
     Route: 048
     Dates: start: 20221201, end: 20221201
  6. ZOPICLONE [Suspect]
     Active Substance: ZOPICLONE
     Indication: Toxicity to various agents
     Dosage: 120 MG, DAILY
     Route: 048
     Dates: start: 20221201, end: 20221201
  7. ESKETAMINE [Concomitant]
     Active Substance: ESKETAMINE
     Indication: Depression

REACTIONS (6)
  - Hypothermia [Recovering/Resolving]
  - Troponin increased [Recovering/Resolving]
  - Electrocardiogram repolarisation abnormality [Recovering/Resolving]
  - Coma [Recovering/Resolving]
  - Hypotension [Recovering/Resolving]
  - Off label use [Unknown]

NARRATIVE: CASE EVENT DATE: 20221201
